FAERS Safety Report 8208427-7 (Version None)
Quarter: 2012Q1

REPORT INFORMATION
  Report Type: 
  Country: None (occurrence: None)
  Receive Date: 20120314
  Receipt Date: 20120307
  Transmission Date: 20120608
  Serious: Yes (Disabling)
  Sender: FDA-Public Use
  Company Number: US-BAYER-201029617NA

PATIENT
  Age: 29 Year
  Sex: Female
  Weight: 61 kg

DRUGS (2)
  1. YASMIN [Suspect]
     Route: 048
     Dates: start: 20031101, end: 20040915
  2. PARAGARD T 380A [Concomitant]

REACTIONS (4)
  - DYSTHYMIC DISORDER [None]
  - DEPRESSION [None]
  - DEEP VEIN THROMBOSIS [None]
  - THROMBOSIS [None]
